FAERS Safety Report 22301780 (Version 1)
Quarter: 2023Q2

REPORT INFORMATION
  Report Type: Spontaneous
  Country: FR (occurrence: FR)
  Receive Date: 20230510
  Receipt Date: 20230510
  Transmission Date: 20230722
  Serious: Yes (Hospitalization, Other)
  Sender: FDA-Public Use
  Company Number: None

PATIENT
  Age: 45 Year
  Sex: Male
  Weight: 86 kg

DRUGS (2)
  1. LOVENOX [Suspect]
     Active Substance: ENOXAPARIN SODIUM
     Indication: Embolism
     Dosage: 0.8ML 2/DAY
     Route: 058
     Dates: start: 20230316, end: 20230319
  2. HEPARIN SODIUM [Suspect]
     Active Substance: HEPARIN SODIUM
     Indication: Embolism
     Dosage: 22000 IU/D
     Route: 042
     Dates: start: 20230313, end: 20230316

REACTIONS (1)
  - Heparin-induced thrombocytopenia [Recovered/Resolved]
